FAERS Safety Report 8992417 (Version 1)
Quarter: 2012Q4

REPORT INFORMATION
  Report Type: 
  Country: US (occurrence: US)
  Receive Date: 20121231
  Receipt Date: 20121231
  Transmission Date: 20130627
  Serious: Yes (Hospitalization, Other)
  Sender: FDA-Public Use
  Company Number: US-BRISTOL-MYERS SQUIBB COMPANY-17064171

PATIENT
  Age: 57 Year
  Sex: Male

DRUGS (1)
  1. COUMADIN [Suspect]
     Route: 048

REACTIONS (5)
  - Toxicity to various agents [Unknown]
  - International normalised ratio increased [Unknown]
  - Epistaxis [Unknown]
  - Catheter site haemorrhage [Unknown]
  - Treatment noncompliance [Unknown]
